FAERS Safety Report 18095996 (Version 1)
Quarter: 2020Q3

REPORT INFORMATION
  Report Type: Spontaneous
  Country: MX (occurrence: MX)
  Receive Date: 20200730
  Receipt Date: 20200730
  Transmission Date: 20201103
  Serious: Yes (Disabling, Other)
  Sender: FDA-Public Use
  Company Number: MX-ASTRAZENECA-2020SE94310

PATIENT
  Age: 75 Year
  Sex: Female
  Weight: 50 kg

DRUGS (5)
  1. VANNAIR [Suspect]
     Active Substance: BUDESONIDE\FORMOTEROL FUMARATE DIHYDRATE
     Indication: PRODUCTIVE COUGH
     Dosage: 160 / 4.5 MCG TWO MONTHS AGO, 1 INHALATION IN THE MORNING AND 1 AT NIGHT
     Route: 055
     Dates: end: 20200720
  2. ESPIRIVE [Concomitant]
  3. FLUTICASONE. [Concomitant]
     Active Substance: FLUTICASONE
  4. SALBUTAMOL [Concomitant]
     Active Substance: ALBUTEROL
     Dosage: 1 INHALATION IN THE MORNING AND 1 INHALATION 2 MONTHS AGO
  5. SALMETEROL [Concomitant]
     Active Substance: SALMETEROL

REACTIONS (6)
  - Inflammation [Unknown]
  - Unevaluable event [Unknown]
  - Deafness [Not Recovered/Not Resolved]
  - Speech disorder [Recovering/Resolving]
  - Ear swelling [Unknown]
  - Excessive cerumen production [Not Recovered/Not Resolved]
